FAERS Safety Report 6715402-8 (Version None)
Quarter: 2010Q2

REPORT INFORMATION
  Report Type: 
  Country: None (occurrence: None)
  Receive Date: 20100507
  Receipt Date: 20100428
  Transmission Date: 20101027
  Serious: Yes (Hospitalization, Other)
  Sender: FDA-Public Use
  Company Number: US-BAYER-200937624NA

PATIENT
  Age: 83 Year
  Sex: Male
  Weight: 71 kg

DRUGS (14)
  1. NEXAVAR [Suspect]
     Indication: METASTATIC RENAL CELL CARCINOMA
     Dosage: TOTAL DAILY DOSE: 800 MG  UNIT DOSE: 200 MG
     Route: 048
     Dates: start: 20091015, end: 20091027
  2. NEXAVAR [Suspect]
     Dosage: TOTAL DAILY DOSE: 800 MG  UNIT DOSE: 200 MG
     Route: 048
     Dates: end: 20091122
  3. NEXAVAR [Suspect]
     Dosage: TOTAL DAILY DOSE: 400 MG  UNIT DOSE: 200 MG
     Route: 048
     Dates: start: 20091216
  4. NORVASC [Concomitant]
     Dosage: TOTAL DAILY DOSE: 5 MG
     Route: 048
  5. DIOVAN [Concomitant]
     Dosage: TOTAL DAILY DOSE: 160 MG
     Route: 048
  6. CENTRUM SILVER [Concomitant]
     Dosage: ONE ONCE A DAY
     Route: 048
  7. BENADRYL [Concomitant]
     Dosage: TOTAL DAILY DOSE: 25 MG
     Route: 048
  8. ALEVE (CAPLET) [Concomitant]
     Dosage: RARELY TAKEN
     Route: 048
  9. ATIVAN [Concomitant]
     Dosage: TAKE 1 MG ON ARRIVAL TO MRI APPT AND MAY REPEAT IF NEEDED IN 30 MINUTES
     Route: 048
  10. CLOBETASOL PROPIONATE [Concomitant]
     Dosage: APPLY TO AFFECTED AREA
  11. MEGACE [Concomitant]
     Indication: DECREASED APPETITE
     Dosage: UNIT DOSE: 40 MG/ML
     Route: 048
  12. VICODIN [Concomitant]
     Indication: PAIN
     Dosage: AS USED: 5-500 MG
     Route: 048
  13. CIPRO [Concomitant]
     Dosage: TOTAL DAILY DOSE: 1000 MG
     Route: 048
  14. ZANTAC [Concomitant]
     Dosage: TOTAL DAILY DOSE: 300 MG
     Route: 048

REACTIONS (21)
  - ABDOMINAL DISTENSION [None]
  - ARTHRALGIA [None]
  - ASTHENIA [None]
  - DECREASED APPETITE [None]
  - DEHYDRATION [None]
  - DIARRHOEA [None]
  - DIZZINESS [None]
  - DYSPHONIA [None]
  - DYSPNOEA [None]
  - FLANK PAIN [None]
  - GASTROOESOPHAGEAL REFLUX DISEASE [None]
  - HEART RATE INCREASED [None]
  - HYPOPHAGIA [None]
  - HYPOTENSION [None]
  - NAUSEA [None]
  - PAIN IN EXTREMITY [None]
  - PALMAR-PLANTAR ERYTHRODYSAESTHESIA SYNDROME [None]
  - PLEURITIC PAIN [None]
  - PRURITUS [None]
  - SKIN LESION [None]
  - SKIN ULCER [None]
